FAERS Safety Report 7731103-1 (Version None)
Quarter: 2011Q3

REPORT INFORMATION
  Report Type: 
  Country: None (occurrence: None)
  Receive Date: 20110906
  Receipt Date: 20110906
  Transmission Date: 20111222
  Serious: Yes (Other)
  Sender: FDA-Public Use
  Company Number: None

PATIENT
  Sex: Female
  Weight: 78.471 kg

DRUGS (1)
  1. NEULASTA [Suspect]
     Dosage: UNK
     Route: 065
     Dates: start: 20110826, end: 20110826

REACTIONS (7)
  - VULVOVAGINAL PAIN [None]
  - VAGINAL HAEMORRHAGE [None]
  - MUCOSAL DISCOLOURATION [None]
  - PELVIC PAIN [None]
  - RECTAL HAEMORRHAGE [None]
  - BONE PAIN [None]
  - PROCTALGIA [None]
